FAERS Safety Report 11423417 (Version 5)
Quarter: 2016Q1

REPORT INFORMATION
  Report Type: Report from Study
  Country: GB (occurrence: GB)
  Receive Date: 20150827
  Receipt Date: 20160113
  Transmission Date: 20160525
  Serious: Yes (Other)
  Sender: FDA-Public Use
  Company Number: GB-BRISTOL-MYERS SQUIBB COMPANY-21279583

PATIENT
  Sex: Female

DRUGS (1)
  1. ABATACEPT [Suspect]
     Active Substance: ABATACEPT
     Indication: RHEUMATOID ARTHRITIS
     Dosage: PRE-FILLED PEN
     Route: 058
     Dates: start: 20130701

REACTIONS (3)
  - Upper limb fracture [Unknown]
  - Condition aggravated [Unknown]
  - Viral infection [Unknown]
